FAERS Safety Report 5035432-4 (Version None)
Quarter: 2006Q2

REPORT INFORMATION
  Report Type: 
  Country: None (occurrence: None)
  Receive Date: 20060526
  Receipt Date: 20060217
  Transmission Date: 20061013
  Serious: No
  Sender: FDA-Public Use
  Company Number: FABR-11412

PATIENT
  Age: 34 Year
  Sex: Male

DRUGS (1)
  1. FABRAZYME [Suspect]
     Indication: FABRY'S DISEASE
     Dates: start: 20060109

REACTIONS (4)
  - CHEST PAIN [None]
  - FATIGUE [None]
  - FLANK PAIN [None]
  - SOMNOLENCE [None]
